FAERS Safety Report 11858179 (Version 4)
Quarter: 2016Q2

REPORT INFORMATION
  Report Type: Spontaneous
  Country: JP (occurrence: JP)
  Receive Date: 20151222
  Receipt Date: 20160407
  Transmission Date: 20160815
  Serious: Yes (Other)
  Sender: FDA-Public Use
  Company Number: JP-VIIV HEALTHCARE LIMITED-JP2015JPN178273

PATIENT
  Age: 74 Year
  Sex: Male
  Weight: 43 kg

DRUGS (2)
  1. HEPSERA [Suspect]
     Active Substance: ADEFOVIR DIPIVOXIL
     Indication: CHRONIC HEPATITIS B
     Dosage: 10 MG, QD
     Route: 048
     Dates: start: 20070119, end: 20151021
  2. ZEFIX [Suspect]
     Active Substance: LAMIVUDINE
     Indication: CHRONIC HEPATITIS B
     Dosage: 100 MG, QD
     Route: 048
     Dates: start: 20070119, end: 20151021

REACTIONS (6)
  - Blood alkaline phosphatase increased [Unknown]
  - Bone scan abnormal [Unknown]
  - Hypophosphataemia [Unknown]
  - Bone pain [Recovering/Resolving]
  - Resorption bone increased [Recovering/Resolving]
  - Fanconi syndrome acquired [Recovering/Resolving]

NARRATIVE: CASE EVENT DATE: 20150311
